FAERS Safety Report 6843564-0 (Version None)
Quarter: 2010Q3

REPORT INFORMATION
  Report Type: 
  Country: None (occurrence: None)
  Receive Date: 20100715
  Receipt Date: 20100628
  Transmission Date: 20110219
  Serious: Yes (Other)
  Sender: FDA-Public Use
  Company Number: US-SANOFI-AVENTIS-2010SA027403

PATIENT
  Sex: Male

DRUGS (4)
  1. SOLOSTAR [Suspect]
  2. SOLOSTAR [Suspect]
  3. SOLOSTAR [Suspect]
  4. LANTUS [Suspect]

REACTIONS (1)
  - DEVICE MALFUNCTION [None]
